FAERS Safety Report 8478769-9 (Version None)
Quarter: 2012Q2

REPORT INFORMATION
  Report Type: 
  Country: None (occurrence: None)
  Receive Date: 20120621
  Receipt Date: 20120613
  Transmission Date: 20120825
  Serious: Yes (Death)
  Sender: FDA-Public Use
  Company Number: WAES 1206USA02383

PATIENT

DRUGS (1)
  1. PRIMAXIN [Suspect]
     Indication: ACINETOBACTER BACTERAEMIA
     Dosage: IV
     Route: 042

REACTIONS (1)
  - DRUG RESISTANCE [None]
